FAERS Safety Report 6195736-9 (Version None)
Quarter: 2009Q2

REPORT INFORMATION
  Report Type: 
  Country: None (occurrence: None)
  Receive Date: 20090520
  Receipt Date: 20090518
  Transmission Date: 20091009
  Serious: Yes (Other)
  Sender: FDA-Public Use
  Company Number: US-BRISTOL-MYERS SQUIBB COMPANY-13492285

PATIENT
  Age: 72 Year
  Sex: Female
  Weight: 79 kg

DRUGS (3)
  1. ESTRACE [Suspect]
     Indication: MENOPAUSAL SYMPTOMS
     Dates: start: 19990101, end: 20040101
  2. ESTRADIOL [Suspect]
     Indication: MENOPAUSAL SYMPTOMS
     Dates: start: 19990101, end: 20040101
  3. PROMETRIUM [Suspect]
     Indication: MENOPAUSAL SYMPTOMS
     Dates: start: 19990101, end: 20040101

REACTIONS (1)
  - BREAST CANCER [None]
